FAERS Safety Report 14771913 (Version 2)
Quarter: 2018Q2

REPORT INFORMATION
  Report Type: Report from Study
  Country: FR (occurrence: FR)
  Receive Date: 20180417
  Receipt Date: 20180612
  Transmission Date: 20180711
  Serious: Yes (Life-Threatening, Hospitalization)
  Sender: FDA-Public Use
  Company Number: FR-GILEAD-2018-0333553

PATIENT
  Age: 72 Year
  Sex: Male
  Weight: 58 kg

DRUGS (6)
  1. BACTRIM [Concomitant]
     Active Substance: SULFAMETHOXAZOLE\TRIMETHOPRIM
     Dosage: UNK
     Dates: start: 20170531
  2. LEDERFOLINE [Concomitant]
     Active Substance: LEUCOVORIN CALCIUM
     Dosage: 25 MG, Q1WK
     Dates: start: 20170531
  3. ZELITREX [Concomitant]
     Active Substance: VALACYCLOVIR HYDROCHLORIDE
     Dosage: 1000 MG, QD
     Route: 048
     Dates: start: 20170531, end: 20180314
  4. IDELALISIB [Suspect]
     Active Substance: IDELALISIB
     Indication: WALDENSTROM^S MACROGLOBULINAEMIA
     Dosage: 150 MG, BID
     Route: 048
     Dates: start: 20170531, end: 20180330
  5. CLAMOXYL                           /00249601/ [Concomitant]
     Active Substance: AMOXICILLIN
     Dosage: 1000 MG, QD
     Dates: start: 20170531, end: 20180314
  6. GAZYVARO [Suspect]
     Active Substance: OBINUTUZUMAB
     Indication: WALDENSTROM^S MACROGLOBULINAEMIA
     Dosage: 1000 MG, CYCLICAL
     Route: 042
     Dates: start: 20170531, end: 20171018

REACTIONS (3)
  - Diarrhoea [Recovered/Resolved]
  - Hypokalaemia [Recovered/Resolved]
  - Dehydration [Recovered/Resolved]

NARRATIVE: CASE EVENT DATE: 20180317
